FAERS Safety Report 20443449 (Version 1)
Quarter: 2022Q1

REPORT INFORMATION
  Report Type: Spontaneous
  Country: US (occurrence: None)
  Receive Date: 20220207
  Receipt Date: 20220207
  Transmission Date: 20220423
  Serious: Yes (Other)
  Sender: FDA-Public Use
  Company Number: None

PATIENT
  Age: 40 Year
  Sex: Female
  Weight: 92.25 kg

DRUGS (11)
  1. ADDYI [Suspect]
     Active Substance: FLIBANSERIN
     Indication: Mood swings
     Dosage: FREQUENCY : AT BEDTIME;?
     Route: 048
  2. ADDYI [Suspect]
     Active Substance: FLIBANSERIN
     Indication: Libido disorder
  3. ESOMEPRAZOLE MAG DR [Concomitant]
  4. NORETH/E ES FE [Concomitant]
  5. LEVOCETIRIZINE DIHYDRO [Concomitant]
  6. OZEMPIC [Concomitant]
     Active Substance: SEMAGLUTIDE
  7. BUPROPION HYDROCHLORIDE XL [Concomitant]
     Active Substance: BUPROPION HYDROCHLORIDE
  8. SIMVASTATIN [Concomitant]
     Active Substance: SIMVASTATIN
  9. CYANOCOBALAMIN [Concomitant]
     Active Substance: CYANOCOBALAMIN
  10. CALCIUM AND D3 [Concomitant]
  11. VITAMINS [Concomitant]
     Active Substance: VITAMINS

REACTIONS (6)
  - Dry skin [None]
  - Erythema [None]
  - Swelling [None]
  - Neck pain [None]
  - Rash pruritic [None]
  - Skin exfoliation [None]

NARRATIVE: CASE EVENT DATE: 20220204
